FAERS Safety Report 6067924-3 (Version None)
Quarter: 2009Q1

REPORT INFORMATION
  Report Type: 
  Country: None (occurrence: None)
  Receive Date: 20090206
  Receipt Date: 20081110
  Transmission Date: 20090719
  Serious: Yes (Other)
  Sender: FDA-Public Use
  Company Number: IN-ELI_LILLY_AND_COMPANY-IN200811003246

PATIENT
  Age: 30 Year
  Sex: Male

DRUGS (4)
  1. ZYPREXA [Suspect]
     Indication: SCHIZOPHRENIA
     Dosage: 5 MG, UNKNOWN
     Route: 048
  2. ZYPREXA [Interacting]
     Dosage: UNK, UNKNOWN
     Route: 048
  3. LITHIUM [Interacting]
     Dosage: 1200 MG, UNKNOWN
     Route: 065
  4. HALOPERIDOL [Concomitant]
     Indication: SCHIZOPHRENIA
     Dosage: UNK, UNKNOWN
     Route: 065

REACTIONS (3)
  - DRUG INTERACTION [None]
  - ERECTILE DYSFUNCTION [None]
  - PRIAPISM [None]
